FAERS Safety Report 6721396-1 (Version None)
Quarter: 2010Q2

REPORT INFORMATION
  Report Type: 
  Country: None (occurrence: None)
  Receive Date: 20100512
  Receipt Date: 20100504
  Transmission Date: 20101027
  Serious: Yes (Hospitalization, Other)
  Sender: FDA-Public Use
  Company Number: CA-BAYER-200915686BCC

PATIENT
  Age: 69 Year
  Sex: Male

DRUGS (19)
  1. ASPIRIN [Suspect]
     Route: 065
  2. PREVACID [Suspect]
     Route: 065
  3. PRINIVIL [Suspect]
     Route: 048
  4. PLAVIX [Suspect]
     Route: 065
  5. WARFARIN SODIUM [Suspect]
     Indication: ANTICOAGULANT THERAPY
     Route: 065
  6. NORVASC [Suspect]
  7. FERROUS GLUCONATE [Concomitant]
     Route: 065
  8. LIPITOR [Concomitant]
     Route: 065
  9. LORAZEPAM [Concomitant]
     Route: 065
  10. MULTI-VITAMINS [Concomitant]
     Route: 065
  11. ALBUTEROL [Concomitant]
     Route: 065
  12. IMOVANE [Concomitant]
     Route: 065
  13. FLUIDS [Concomitant]
     Route: 042
  14. RED BLOOD CELLS [Concomitant]
     Route: 065
  15. FRESH FROZEN PLASMA [Concomitant]
     Indication: COAGULOPATHY
     Route: 065
  16. VITAMIN K TAB [Concomitant]
     Indication: COAGULOPATHY
     Dosage: AS USED: 10 MG
     Route: 065
  17. DESMOPRESSIN ACETATE [Concomitant]
     Indication: COAGULOPATHY
     Route: 065
  18. PANTOPRAZOLE SODIUM [Concomitant]
     Indication: UPPER GASTROINTESTINAL HAEMORRHAGE
  19. OCTREOTIDE ACETATE [Concomitant]
     Indication: UPPER GASTROINTESTINAL HAEMORRHAGE

REACTIONS (10)
  - CYST [None]
  - GASTRIC HAEMORRHAGE [None]
  - GASTRIC ULCER HAEMORRHAGE [None]
  - HAEMATEMESIS [None]
  - HAEMOGLOBIN DECREASED [None]
  - HYPOVOLAEMIA [None]
  - INTERNATIONAL NORMALISED RATIO ABNORMAL [None]
  - NEPHROPATHY [None]
  - OCCULT BLOOD POSITIVE [None]
  - RENAL FAILURE [None]
